FAERS Safety Report 9265490 (Version 1)
Quarter: 2013Q2

REPORT INFORMATION
  Report Type: Spontaneous
  Country: FR (occurrence: FR)
  Receive Date: 20130501
  Receipt Date: 20130501
  Transmission Date: 20140414
  Serious: Yes (Other)
  Sender: FDA-Public Use
  Company Number: FR-FRI-1000044805

PATIENT
  Sex: Female

DRUGS (2)
  1. MILNACIPRAN [Suspect]
     Route: 048
     Dates: start: 2011, end: 2013
  2. THERALENE [Concomitant]

REACTIONS (1)
  - Tardive dyskinesia [Not Recovered/Not Resolved]
